FAERS Safety Report 9047029 (Version 6)
Quarter: 2013Q2

REPORT INFORMATION
  Report Type: Spontaneous
  Country: GB (occurrence: GB)
  Receive Date: 20130204
  Receipt Date: 20130401
  Transmission Date: 20140414
  Serious: Yes (Other)
  Sender: FDA-Public Use
  Company Number: GB-JNJFOC-20130113106

PATIENT
  Sex: 0

DRUGS (9)
  1. DOXORUBICIN [Suspect]
     Indication: B-CELL LYMPHOMA
     Dosage: 6-8 CYCLES
     Route: 042
  2. BENDAMUSTINE [Suspect]
     Indication: B-CELL LYMPHOMA
     Dosage: 4-6 CYCLES FOR DAYS 1 AND 2 EVERY 4 WEEKS
     Route: 042
  3. DOXORUBICIN [Suspect]
     Indication: B-CELL LYMPHOMA
     Dosage: 6-8 CYCLES
     Route: 065
  4. OBINUTUZUMAB [Suspect]
     Indication: B-CELL LYMPHOMA
     Dosage: ON DAYS 1 AND 8 OF CYCLE 1
     Route: 065
  5. OBINUTUZUMAB [Suspect]
     Indication: B-CELL LYMPHOMA
     Dosage: FOR 2 YEARS OR UNTIL PROGRESSION
     Route: 065
  6. OBINUTUZUMAB [Suspect]
     Indication: B-CELL LYMPHOMA
     Dosage: DAY 1 OF SUBSEQUENT CYCLES
     Route: 065
  7. CYCLOPHOSPHAMIDE [Suspect]
     Indication: B-CELL LYMPHOMA
     Dosage: 6-8 CYCLES
     Route: 065
  8. VINCRISTINE [Suspect]
     Indication: B-CELL LYMPHOMA
     Dosage: 6-8 CYCLES
     Route: 065
  9. PREDNISONE [Suspect]
     Indication: B-CELL LYMPHOMA
     Dosage: 6-8 CYCLES
     Route: 065

REACTIONS (5)
  - Neutropenia [Unknown]
  - Infection [Unknown]
  - Neutropenic infection [Recovered/Resolved]
  - Sepsis [Recovered/Resolved]
  - Infusion related reaction [Unknown]
